FAERS Safety Report 9220121 (Version 2)
Quarter: 2013Q2

REPORT INFORMATION
  Report Type: Spontaneous
  Country: US (occurrence: US)
  Receive Date: 20130409
  Receipt Date: 20130520
  Transmission Date: 20140414
  Serious: Yes (Hospitalization, Other)
  Sender: FDA-Public Use
  Company Number: US-ROCHE-1210957

PATIENT
  Age: 81 Year
  Sex: Female

DRUGS (1)
  1. ACTILYSE [Suspect]
     Indication: ISCHAEMIC STROKE
     Route: 065

REACTIONS (4)
  - Haemorrhage [Unknown]
  - Jugular vein thrombosis [Unknown]
  - Sick sinus syndrome [Unknown]
  - Atrial fibrillation [Unknown]
